FAERS Safety Report 9435235 (Version 1)
Quarter: 2013Q3

REPORT INFORMATION
  Report Type: Report from Study
  Country: US (occurrence: US)
  Receive Date: 20130801
  Receipt Date: 20130801
  Transmission Date: 20140515
  Serious: Yes (Death, Other)
  Sender: FDA-Public Use
  Company Number: US-ROCHE-1255955

PATIENT
  Age: 72 Year
  Sex: Male

DRUGS (4)
  1. RANIBIZUMAB [Suspect]
     Indication: AGE-RELATED MACULAR DEGENERATION
     Route: 050
  2. OMEPRAZOLE [Concomitant]
     Route: 065
     Dates: start: 20040410
  3. ATENOLOL [Concomitant]
     Route: 065
     Dates: start: 20100518
  4. PRAVASTATIN [Concomitant]
     Route: 065
     Dates: start: 20040505

REACTIONS (2)
  - Death [Fatal]
  - Renal cell carcinoma [Unknown]
